FAERS Safety Report 24406454 (Version 2)
Quarter: 2024Q4

REPORT INFORMATION
  Report Type: Spontaneous
  Country: US (occurrence: US)
  Receive Date: 20241007
  Receipt Date: 20241011
  Transmission Date: 20250115
  Serious: Yes (Life-Threatening, Hospitalization, Other)
  Sender: TORRENT
  Company Number: US-TORRENT-00013769

PATIENT
  Age: 65 Year
  Sex: Female

DRUGS (1)
  1. RISPERIDONE [Suspect]
     Active Substance: RISPERIDONE
     Indication: Psychotic disorder
     Dosage: UNKNOWN
     Route: 065

REACTIONS (4)
  - Tardive dyskinesia [Unknown]
  - Condition aggravated [Unknown]
  - Respiratory dyskinesia [Unknown]
  - Vocal cord dysfunction [Unknown]
